FAERS Safety Report 13525932 (Version 1)
Quarter: 2017Q2

REPORT INFORMATION
  Report Type: Spontaneous
  Country: US (occurrence: US)
  Receive Date: 20170508
  Receipt Date: 20170508
  Transmission Date: 20170830
  Serious: Yes (Other)
  Sender: FDA-Public Use
  Company Number: None

PATIENT
  Age: 59 Year
  Sex: Male
  Weight: 57.2 kg

DRUGS (8)
  1. MVI [Concomitant]
     Active Substance: VITAMINS
  2. ALEVE [Concomitant]
     Active Substance: NAPROXEN SODIUM
  3. PERTUZUMAB [Suspect]
     Active Substance: PERTUZUMAB
     Indication: BREAST CANCER
     Dosage: 1X OVER 60 MINUTES
     Route: 042
     Dates: start: 20160921, end: 20160921
  4. ZADITOR [Concomitant]
     Active Substance: KETOTIFEN FUMARATE
  5. CALCIUM CITRATE [Concomitant]
     Active Substance: CALCIUM CITRATE
  6. NASALCROM [Concomitant]
     Active Substance: CROMOLYN SODIUM
  7. TYLENOL [Concomitant]
     Active Substance: ACETAMINOPHEN
  8. TRASTUZUMAB [Suspect]
     Active Substance: TRASTUZUMAB
     Indication: BREAST CANCER
     Dosage: 1X OVER 4 HRS D/T AE
     Route: 042
     Dates: start: 20160921, end: 20160921

REACTIONS (3)
  - Infusion related reaction [None]
  - Dyspnoea [None]
  - Dysphonia [None]

NARRATIVE: CASE EVENT DATE: 20160921
